FAERS Safety Report 4519320-5 (Version None)
Quarter: 2004Q4

REPORT INFORMATION
  Report Type: 
  Country: None (occurrence: None)
  Receive Date: 20041206
  Receipt Date: 20041129
  Transmission Date: 20050328
  Serious: Yes (Hospitalization)
  Sender: FDA-Public Use
  Company Number: 52004GB03330

PATIENT
  Age: 25 Year
  Sex: Male

DRUGS (8)
  1. LAMOTRIGINE [Suspect]
     Indication: ILL-DEFINED DISORDER
     Dosage: 1200MG UNKNOWN
     Route: 065
  2. METFORMIN HCL [Concomitant]
     Dosage: 800MG UNKNOWN
  3. ZOPICLONE [Concomitant]
     Dosage: 60MG UNKNOWN
  4. SULPIRIDE [Concomitant]
     Dosage: 6400MG UNKNOWN
  5. VENLAFAXINE [Concomitant]
     Dosage: 600MG UNKNOWN
  6. ATENOLOL [Concomitant]
     Dosage: 100MG UNKNOWN
  7. ACAMPROSATE [Concomitant]
     Dosage: 7900MG UNKNOWN
  8. CLOZARIL [Concomitant]
     Dosage: 2700MG UNKNOWN

REACTIONS (2)
  - METABOLIC ACIDOSIS [None]
  - SOMNOLENCE [None]
